FAERS Safety Report 7432401-1 (Version None)
Quarter: 2011Q2

REPORT INFORMATION
  Report Type: 
  Country: None (occurrence: None)
  Receive Date: 20110422
  Receipt Date: 20110407
  Transmission Date: 20111010
  Serious: No
  Sender: FDA-Public Use
  Company Number: US-B.I. PHARMACEUTICALS,INC./RIDGEFIELD-2011-BP-10520BP

PATIENT
  Age: 80 Year
  Sex: Male

DRUGS (6)
  1. AVAPRO [Concomitant]
  2. SINGULAIR [Concomitant]
     Dates: start: 20110201
  3. COREG [Concomitant]
  4. NORVASC [Concomitant]
  5. PRADAXA [Suspect]
     Indication: ATRIAL FIBRILLATION
     Dosage: 300 MG
     Route: 048
     Dates: start: 20110201
  6. SPIRIVA [Suspect]
     Dates: start: 20110201

REACTIONS (4)
  - DYSPNOEA [None]
  - VISION BLURRED [None]
  - FEELING JITTERY [None]
  - DYSPEPSIA [None]
